FAERS Safety Report 8914253 (Version 2)
Quarter: 2012Q4

REPORT INFORMATION
  Report Type: 
  Country: US (occurrence: US)
  Receive Date: 20121119
  Receipt Date: 20121123
  Transmission Date: 20130627
  Serious: Yes (Other)
  Sender: FDA-Public Use
  Company Number: US-AMGEN-USASP2012072747

PATIENT
  Age: 90 Year
  Sex: Female
  Weight: 71.2 kg

DRUGS (7)
  1. PROLIA [Suspect]
     Indication: OSTEOPOROSIS
     Dosage: UNK UNK, q6mo
     Route: 030
     Dates: start: 20111027
  2. PROLIA [Suspect]
     Dosage: UNK UNK, q6mo
     Route: 030
     Dates: start: 20120522
  3. WARFARIN [Concomitant]
     Indication: ATRIAL FIBRILLATION
     Dosage: 2.5 mg, qd
     Route: 048
  4. MAXZIDE [Concomitant]
     Indication: HYPERTENSION
     Dosage: UNK UNK, qd
     Route: 048
  5. SIMVASTATIN [Concomitant]
     Indication: BLOOD CHOLESTEROL INCREASED
     Dosage: UNK
     Route: 048
  6. METOPROLOL [Concomitant]
     Indication: HYPERTENSION
     Dosage: UNK UNK, bid
     Route: 048
  7. CALTRATE                           /00944201/ [Concomitant]
     Indication: OSTEOPOROSIS
     Dosage: UNK UNK, bid
     Route: 048

REACTIONS (2)
  - Spinal compression fracture [Not Recovered/Not Resolved]
  - Incorrect route of drug administration [Unknown]
